FAERS Safety Report 9199658 (Version 2)
Quarter: 2013Q2

REPORT INFORMATION
  Report Type: Spontaneous
  Country: AU (occurrence: AU)
  Receive Date: 20130329
  Receipt Date: 20130513
  Transmission Date: 20140414
  Serious: Yes (Other)
  Sender: FDA-Public Use
  Company Number: AU-PFIZER INC-2013100992

PATIENT
  Age: 45 Year
  Sex: Male
  Weight: 90 kg

DRUGS (3)
  1. LYRICA [Suspect]
     Indication: NEURALGIA
     Dosage: 150 MG, 2X/DAY
     Route: 048
     Dates: start: 20120526, end: 20120615
  2. COVERSYL [Concomitant]
     Indication: HYPERTENSION
     Dosage: 10 MG, UNK
     Route: 048
     Dates: start: 2005, end: 20121213
  3. CELEBREX [Concomitant]
     Dosage: 200 MG, 2X/DAY
     Route: 048
     Dates: start: 20120526, end: 20120613

REACTIONS (1)
  - Atrial fibrillation [Recovered/Resolved]
